FAERS Safety Report 7077988-6 (Version None)
Quarter: 2010Q4

REPORT INFORMATION
  Report Type: 
  Country: None (occurrence: None)
  Receive Date: 20101101
  Receipt Date: 20101025
  Transmission Date: 20110411
  Serious: Yes (Hospitalization, Other)
  Sender: FDA-Public Use
  Company Number: SE-ABBOTT-10P-150-0681139-00

PATIENT
  Age: 69 Year
  Sex: Male

DRUGS (9)
  1. ERGENYL TABLETS [Suspect]
     Indication: EPILEPSY
     Dosage: EXTENDED-RELEASE TABLETS/300MG
     Route: 048
     Dates: start: 20040101, end: 20091005
  2. TEGRETOL [Concomitant]
     Indication: PRODUCT USED FOR UNKNOWN INDICATION
     Dosage: SLOW RELEASE
  3. PAMOL [Concomitant]
     Indication: PRODUCT USED FOR UNKNOWN INDICATION
  4. FURIX [Concomitant]
     Indication: PRODUCT USED FOR UNKNOWN INDICATION
  5. OXASCAND [Concomitant]
     Indication: PRODUCT USED FOR UNKNOWN INDICATION
  6. ASPIRIN [Concomitant]
     Indication: PRODUCT USED FOR UNKNOWN INDICATION
  7. LACTULOSE [Concomitant]
     Indication: PRODUCT USED FOR UNKNOWN INDICATION
  8. TRIOBE [Concomitant]
     Indication: PRODUCT USED FOR UNKNOWN INDICATION
  9. FENANTOIN [Concomitant]
     Indication: PRODUCT USED FOR UNKNOWN INDICATION
     Dates: end: 20050101

REACTIONS (5)
  - APATHY [None]
  - ENCEPHALOPATHY [None]
  - MEMORY IMPAIRMENT [None]
  - MENTAL IMPAIRMENT [None]
  - VASCULAR DEMENTIA [None]
